FAERS Safety Report 7733410-5 (Version None)
Quarter: 2011Q3

REPORT INFORMATION
  Report Type: 
  Country: None (occurrence: None)
  Receive Date: 20110902
  Receipt Date: 20110902
  Transmission Date: 20111222
  Serious: Yes (Life-Threatening, Hospitalization, Disabling)
  Sender: FDA-Public Use
  Company Number: None

PATIENT
  Sex: Male
  Weight: 94.8018 kg

DRUGS (1)
  1. IBUPROFEN [Suspect]
     Indication: ANALGESIC THERAPY
     Dosage: 600-800 MG 4 HOURS ORAL
     Route: 048

REACTIONS (5)
  - HEART RATE INCREASED [None]
  - BLOOD PRESSURE DECREASED [None]
  - HYPERHIDROSIS [None]
  - BLOOD POTASSIUM ABNORMAL [None]
  - ULCER HAEMORRHAGE [None]
